FAERS Safety Report 18365023 (Version 3)
Quarter: 2020Q4

REPORT INFORMATION
  Report Type: Report from Study
  Country: US (occurrence: US)
  Receive Date: 20201009
  Receipt Date: 20201130
  Transmission Date: 20210114
  Serious: Yes (Other)
  Sender: FDA-Public Use
  Company Number: US-GLAXOSMITHKLINE-US2020AMR180587

PATIENT
  Sex: Female
  Weight: 54.42 kg

DRUGS (4)
  1. NIRAPARIB [Suspect]
     Active Substance: NIRAPARIB
     Dosage: 100 MG, QD
  2. NIRAPARIB [Suspect]
     Active Substance: NIRAPARIB
     Dosage: 200 MG, QD
  3. NIRAPARIB [Suspect]
     Active Substance: NIRAPARIB
     Dosage: 100 MG, QD
     Dates: start: 20201009
  4. NIRAPARIB [Suspect]
     Active Substance: NIRAPARIB
     Indication: OVARIAN CANCER
     Dosage: 200 MG, QD
     Dates: start: 20200831, end: 20200923

REACTIONS (9)
  - Insomnia [Recovering/Resolving]
  - Blood pressure fluctuation [Recovered/Resolved]
  - Haemoglobin decreased [Unknown]
  - Fatigue [Unknown]
  - Hip arthroplasty [Recovering/Resolving]
  - Dyspepsia [Recovering/Resolving]
  - Platelet count decreased [Not Recovered/Not Resolved]
  - Lymphoma [Unknown]
  - Lymphadenopathy [Unknown]
